FAERS Safety Report 8614938-2 (Version None)
Quarter: 2012Q3

REPORT INFORMATION
  Report Type: 
  Country: None (occurrence: None)
  Receive Date: 20120809
  Receipt Date: 20120725
  Transmission Date: 20120928
  Serious: Yes (Death, Other)
  Sender: FDA-Public Use
  Company Number: 2012MA009108

PATIENT
  Age: 30 Year
  Sex: Male
  Weight: 81.6475 kg

DRUGS (3)
  1. KADIAN [Suspect]
     Dosage: , PO
     Route: 048
  2. ETHANOL [Suspect]
     Dosage: ; PO
     Route: 048
  3. DEXTROMETHORPHAN HYDROBROMIDE [Suspect]
     Dosage: ; PO
     Route: 048

REACTIONS (3)
  - ASPHYXIA [None]
  - COMPLETED SUICIDE [None]
  - TOXICITY TO VARIOUS AGENTS [None]
